FAERS Safety Report 18265402 (Version 1)
Quarter: 2020Q3

REPORT INFORMATION
  Report Type: Other
  Country: US (occurrence: US)
  Receive Date: 20200914
  Receipt Date: 20200914
  Transmission Date: 20201103
  Serious: No
  Sender: FDA-Public Use
  Company Number: US-LEADIANT BIOSCIENCES INC-2020STPI000158

PATIENT
  Sex: Female

DRUGS (7)
  1. ESTROGEN/METHYLTES [Concomitant]
     Active Substance: ESTROGENS\METHYLTESTOSTERONE
  2. KEPPRA [Concomitant]
     Active Substance: LEVETIRACETAM
  3. PROGESTERONE. [Concomitant]
     Active Substance: PROGESTERONE
  4. TESTOPEL [Concomitant]
     Active Substance: TESTOSTERONE
  5. GLEOSTINE [Concomitant]
     Active Substance: LOMUSTINE
  6. MATULANE [Suspect]
     Active Substance: PROCARBAZINE HYDROCHLORIDE
     Indication: BRAIN NEOPLASM MALIGNANT
     Dosage: 150 MG ON DAYS 8?21 OF EVERY 8 WEEK CYCLE
     Route: 048
     Dates: start: 20190703
  7. ZOFRAN [Concomitant]
     Active Substance: ONDANSETRON HYDROCHLORIDE

REACTIONS (1)
  - White blood cell count decreased [Not Recovered/Not Resolved]
